FAERS Safety Report 10296376 (Version 2)
Quarter: 2015Q3

REPORT INFORMATION
  Report Type: Spontaneous
  Country: US (occurrence: US)
  Receive Date: 20140710
  Receipt Date: 20150709
  Transmission Date: 20151125
  Serious: No
  Sender: FDA-Public Use
  Company Number: US-PURDUE-USA-2014-0114869

PATIENT
  Age: 69 Year
  Sex: Male
  Weight: 121.54 kg

DRUGS (1)
  1. BUTRANS [Suspect]
     Active Substance: BUPRENORPHINE
     Indication: PAIN
     Dosage: 5 AND 10 MCG/HR, WEEKLY
     Route: 062
     Dates: start: 20140422, end: 20140521

REACTIONS (3)
  - Dyspnoea [Recovered/Resolved]
  - Scrotal swelling [Recovered/Resolved]
  - Vertigo positional [Recovered/Resolved]

NARRATIVE: CASE EVENT DATE: 20140422
